FAERS Safety Report 10206635 (Version 2)
Quarter: 2014Q2

REPORT INFORMATION
  Report Type: Spontaneous
  Country: US (occurrence: US)
  Receive Date: 20140530
  Receipt Date: 20140618
  Transmission Date: 20141212
  Serious: No
  Sender: FDA-Public Use
  Company Number: US-009507513-1404USA015357

PATIENT
  Sex: Female
  Weight: 89.34 kg

DRUGS (5)
  1. OXYTROL FOR WOMEN [Suspect]
     Indication: MICTURITION URGENCY
     Dosage: UNK, Q4D
     Route: 062
  2. CLONIDINE [Concomitant]
     Indication: HYPERTENSION
     Dosage: 0.1 MG, QID
  3. LOSARTAN POTASSIUM [Concomitant]
     Indication: HYPERTENSION
     Dosage: 25 MG, QD
  4. TEGRETOL [Concomitant]
     Indication: EPILEPSY
     Dosage: 200 MG, QID
  5. ONE-A-DAY ESSENTIAL VITAMINS [Concomitant]
     Indication: PRODUCT USED FOR UNKNOWN INDICATION
     Dosage: UNK, UNKNOWN

REACTIONS (3)
  - Drug administered at inappropriate site [Unknown]
  - Off label use [Unknown]
  - Product closure removal difficult [Unknown]
